FAERS Safety Report 14763460 (Version 2)
Quarter: 2018Q2

REPORT INFORMATION
  Report Type: Report from Study
  Country: US (occurrence: US)
  Receive Date: 20180416
  Receipt Date: 20180502
  Transmission Date: 20180711
  Serious: No
  Sender: FDA-Public Use
  Company Number: US-AMGEN-USASL2018050188

PATIENT
  Age: 28 Year
  Sex: Female

DRUGS (1)
  1. ENBREL [Suspect]
     Active Substance: ETANERCEPT
     Indication: RHEUMATOID ARTHRITIS
     Dosage: UNK UNK, QWK
     Route: 065

REACTIONS (5)
  - Skin reaction [Unknown]
  - Injection site erythema [Recovered/Resolved]
  - Injection site bruising [Not Recovered/Not Resolved]
  - Injection site pruritus [Recovered/Resolved]
  - Injection site swelling [Recovering/Resolving]

NARRATIVE: CASE EVENT DATE: 201804
